FAERS Safety Report 7348521-6 (Version None)
Quarter: 2011Q1

REPORT INFORMATION
  Report Type: 
  Country: None (occurrence: None)
  Receive Date: 20110314
  Receipt Date: 20110310
  Transmission Date: 20110831
  Serious: Yes (Hospitalization)
  Sender: FDA-Public Use
  Company Number: US-BIOGENIDEC-2010BI037346

PATIENT
  Age: 63 Year
  Sex: Female
  Weight: 83 kg

DRUGS (26)
  1. LEVEMIR [Concomitant]
  2. XANAX [Concomitant]
  3. VOLTAREN [Concomitant]
  4. MICRO-K [Concomitant]
  5. CLONIDINE [Concomitant]
     Indication: HYPERTENSION
  6. ELAVIL [Concomitant]
  7. LASIX [Concomitant]
  8. INSULIN [Concomitant]
  9. PLAVIX [Concomitant]
     Indication: CEREBROVASCULAR ACCIDENT
  10. LEVOTHYROXINE [Concomitant]
  11. NITROGLYCERIN [Concomitant]
  12. CRESTOR [Concomitant]
     Indication: CEREBROVASCULAR ACCIDENT
  13. TYSABRI [Suspect]
     Route: 042
     Dates: start: 20100823
  14. CELEXA [Concomitant]
  15. STEROIDS (NOS) [Concomitant]
     Indication: MULTIPLE SCLEROSIS
  16. ZANTAC [Concomitant]
  17. NEURONTIN [Concomitant]
  18. LORTAB [Concomitant]
     Indication: PAIN
  19. TRANDATE [Concomitant]
  20. LISINOPRIL [Concomitant]
     Indication: HYPERTENSION
  21. ASPIRIN [Concomitant]
  22. FAMOTIDINE [Concomitant]
  23. GLUCOTROL [Concomitant]
  24. TYSABRI [Suspect]
     Indication: MULTIPLE SCLEROSIS
     Route: 042
     Dates: start: 20100823
  25. LOVAZA [Concomitant]
  26. NORVASC [Concomitant]

REACTIONS (14)
  - TRANSIENT ISCHAEMIC ATTACK [None]
  - OROPHARYNGEAL PAIN [None]
  - IMPAIRED DRIVING ABILITY [None]
  - VISUAL IMPAIRMENT [None]
  - URINARY INCONTINENCE [None]
  - DISORIENTATION [None]
  - DIZZINESS [None]
  - CEREBROVASCULAR ACCIDENT [None]
  - STRESS [None]
  - BLINDNESS [None]
  - MULTIPLE SCLEROSIS RELAPSE [None]
  - CEREBRAL HAEMORRHAGE [None]
  - HYPERTENSION [None]
  - EYE HAEMORRHAGE [None]
